FAERS Safety Report 7627177-9 (Version None)
Quarter: 2011Q3

REPORT INFORMATION
  Report Type: 
  Country: None (occurrence: None)
  Receive Date: 20110721
  Receipt Date: 20110714
  Transmission Date: 20111222
  Serious: Yes (Hospitalization)
  Sender: FDA-Public Use
  Company Number: US-BAYER-2011-005034

PATIENT
  Age: 34 Year
  Sex: Female

DRUGS (4)
  1. YASMIN [Suspect]
     Indication: PRODUCT USED FOR UNKNOWN INDICATION
     Dosage: UNK
     Dates: start: 20060101, end: 20070101
  2. ACETAMINOPHEN [Concomitant]
     Indication: ADNEXA UTERI PAIN
  3. VICODIN [Concomitant]
     Indication: ADNEXA UTERI PAIN
  4. COUMADIN [Concomitant]

REACTIONS (1)
  - PULMONARY EMBOLISM [None]
